FAERS Safety Report 5328694-7 (Version None)
Quarter: 2007Q2

REPORT INFORMATION
  Report Type: 
  Country: None (occurrence: None)
  Receive Date: 20070518
  Receipt Date: 20070511
  Transmission Date: 20071010
  Serious: Yes (Hospitalization)
  Sender: FDA-Public Use
  Company Number: B0470909A

PATIENT
  Age: 53 Year
  Sex: Male
  Weight: 85 kg

DRUGS (7)
  1. ZOFRAN [Suspect]
     Dosage: 16MG PER DAY
     Route: 042
     Dates: start: 20070326, end: 20070328
  2. CISPLATIN [Suspect]
     Dosage: 200MG PER DAY
     Route: 042
     Dates: start: 20070326, end: 20070326
  3. ELITEK [Suspect]
     Dosage: 7.5MG PER DAY
     Route: 042
     Dates: start: 20070326, end: 20070328
  4. ETOPOSIDE [Suspect]
     Dosage: 200MG PER DAY
     Route: 042
     Dates: start: 20070326, end: 20070328
  5. SOLU-MEDROL [Concomitant]
     Route: 065
  6. PRIMPERAN INJ [Concomitant]
     Route: 065
  7. XANAX [Concomitant]
     Route: 065

REACTIONS (3)
  - CONVULSION [None]
  - LOSS OF CONSCIOUSNESS [None]
  - URINARY INCONTINENCE [None]
